FAERS Safety Report 9879142 (Version 2)
Quarter: 2014Q1

REPORT INFORMATION
  Report Type: Spontaneous
  Country: US (occurrence: US)
  Receive Date: 20140206
  Receipt Date: 20140206
  Transmission Date: 20141002
  Serious: No
  Sender: FDA-Public Use
  Company Number: US-ALLERGAN-1313727US

PATIENT
  Age: 57 Year
  Sex: Female

DRUGS (3)
  1. BOTOX COSMETIC [Suspect]
     Indication: SKIN WRINKLING
     Dosage: UNK, SINGLE
     Route: 030
     Dates: start: 201306, end: 201306
  2. UNSPECIFIED MEDICATION FOR ACID REFLUX OR IRRITABLE BOWEL [Concomitant]
     Indication: GASTROOESOPHAGEAL REFLUX DISEASE
  3. UNSPECIFIED MEDICATION FOR ACID REFLUX OR IRRITABLE BOWEL [Concomitant]
     Indication: IRRITABLE BOWEL SYNDROME

REACTIONS (5)
  - Eye swelling [Recovering/Resolving]
  - Skin wrinkling [Recovering/Resolving]
  - Injection site pain [Recovering/Resolving]
  - Headache [Recovered/Resolved]
  - Facial paresis [Recovering/Resolving]
